FAERS Safety Report 9324321 (Version 1)
Quarter: 2013Q2

REPORT INFORMATION
  Report Type: Spontaneous
  Country: FR (occurrence: FR)
  Receive Date: 20130603
  Receipt Date: 20130603
  Transmission Date: 20140414
  Serious: Yes (Hospitalization)
  Sender: FDA-Public Use
  Company Number: FR-PFIZER INC-2013165204

PATIENT
  Age: 58 Year
  Sex: Female

DRUGS (1)
  1. SOLU-MEDROL [Suspect]
     Dosage: 1 G, SINGLE
     Route: 042
     Dates: start: 20130114

REACTIONS (2)
  - Hepatitis [Recovered/Resolved]
  - Jaundice [Recovered/Resolved]
